FAERS Safety Report 5339565-4 (Version None)
Quarter: 2007Q2

REPORT INFORMATION
  Report Type: 
  Country: None (occurrence: None)
  Receive Date: 20070523
  Receipt Date: 20070515
  Transmission Date: 20071010
  Serious: Yes (Hospitalization, Disabling)
  Sender: FDA-Public Use
  Company Number: WAES 0704USA05226

PATIENT
  Age: 79 Year
  Sex: Male
  Weight: 50.3493 kg

DRUGS (14)
  1. CAP VORINOSTAT 100 MG [Suspect]
     Indication: NON-SMALL CELL LUNG CANCER
     Dosage: 200 MG/BID/PO
     Route: 048
     Dates: start: 20070116, end: 20070212
  2. CAP VORINOSTAT 100 MG [Suspect]
     Indication: NON-SMALL CELL LUNG CANCER
     Dosage: 200 MG/BID/PO
     Route: 048
     Dates: start: 20070213, end: 20070312
  3. CAP VORINOSTAT 100 MG [Suspect]
     Indication: NON-SMALL CELL LUNG CANCER
     Dosage: 200 MG/BID/PO
     Route: 048
     Dates: start: 20070313, end: 20070409
  4. CAP VORINOSTAT 100 MG [Suspect]
     Indication: NON-SMALL CELL LUNG CANCER
     Dosage: 200 MG/BID/PO
     Route: 048
     Dates: start: 20070410
  5. ERLOTINIB HYDROCHLORIDE 150 MG [Suspect]
     Indication: NON-SMALL CELL LUNG CANCER
     Dosage: 150 MG/DAILY/PO
     Route: 048
     Dates: start: 20070116, end: 20070212
  6. ERLOTINIB HYDROCHLORIDE 150 MG [Suspect]
     Indication: NON-SMALL CELL LUNG CANCER
     Dosage: 150 MG/DAILY/PO
     Route: 048
     Dates: start: 20070213, end: 20070312
  7. ERLOTINIB HYDROCHLORIDE 150 MG [Suspect]
     Indication: NON-SMALL CELL LUNG CANCER
     Dosage: 150 MG/DAILY/PO
     Route: 048
     Dates: start: 20070313, end: 20070409
  8. ERLOTINIB HYDROCHLORIDE 150 MG [Suspect]
     Indication: NON-SMALL CELL LUNG CANCER
     Dosage: 150 MG/DAILY/PO
     Route: 048
     Dates: start: 20070410
  9. BETOPTIC S [Concomitant]
  10. COLACE [Concomitant]
  11. LUMIGAN [Concomitant]
  12. MILK OF MAGNESIA TAB [Concomitant]
  13. REFRESH TEARS LUBRICANT EYE DROP [Concomitant]
  14. TRUSOPT [Concomitant]

REACTIONS (17)
  - BLOOD POTASSIUM DECREASED [None]
  - BLOOD PRESSURE DECREASED [None]
  - CAROTID ARTERY STENOSIS [None]
  - CONJUNCTIVAL DISORDER [None]
  - DEHYDRATION [None]
  - ESCHERICHIA SEPSIS [None]
  - FAECAL INCONTINENCE [None]
  - FAILURE TO THRIVE [None]
  - LETHARGY [None]
  - LOSS OF CONSCIOUSNESS [None]
  - NEUTROPHIL COUNT ABNORMAL [None]
  - OEDEMA PERIPHERAL [None]
  - PALLOR [None]
  - PLATELET COUNT DECREASED [None]
  - PUPILS UNEQUAL [None]
  - RED BLOOD CELLS CSF POSITIVE [None]
  - SYNCOPE [None]
